FAERS Safety Report 9741516 (Version 1)
Quarter: 2013Q4

REPORT INFORMATION
  Report Type: Spontaneous
  Country: AT (occurrence: AT)
  Receive Date: 20131209
  Receipt Date: 20131209
  Transmission Date: 20140711
  Serious: Yes (Death)
  Sender: FDA-Public Use
  Company Number: AT-ROCHE-1312610

PATIENT
  Age: 74 Year
  Sex: Male
  Weight: 114 kg

DRUGS (2)
  1. ROCEPHIN [Suspect]
     Indication: INFECTION
     Dosage: 2X1 G
     Route: 065
     Dates: start: 20131116, end: 20131117
  2. ARAVA [Suspect]
     Indication: RHEUMATOID ARTHRITIS
     Route: 065
     Dates: start: 201302, end: 20131117

REACTIONS (1)
  - Hepatic failure [Fatal]
